FAERS Safety Report 23761674 (Version 1)
Quarter: 2024Q2

REPORT INFORMATION
  Report Type: Spontaneous
  Country: IT (occurrence: IT)
  Receive Date: 20240419
  Receipt Date: 20240419
  Transmission Date: 20240716
  Serious: Yes (Life-Threatening, Hospitalization, Other)
  Sender: FDA-Public Use
  Company Number: IT-EMA-DD-20240327-7482715-073730

PATIENT
  Age: 55 Year
  Sex: Female

DRUGS (7)
  1. CAPECITABINE [Suspect]
     Active Substance: CAPECITABINE
     Indication: Disease progression
  2. DOCETAXEL [Suspect]
     Active Substance: DOCETAXEL\DOCETAXEL ANHYDROUS
     Indication: HER2 positive breast cancer
     Dosage: SIX CYCLES
  3. TRASTUZUMAB [Suspect]
     Active Substance: TRASTUZUMAB
     Indication: HER2 positive breast cancer
     Dosage: FOUR CYCLES
     Dates: start: 202210
  4. PERTUZUMAB [Suspect]
     Active Substance: PERTUZUMAB
     Indication: Breast cancer
     Dosage: FOUR CYCLES
     Dates: start: 202210
  5. EMPAGLIFLOZIN [Concomitant]
     Active Substance: EMPAGLIFLOZIN
     Indication: Type 2 diabetes mellitus
  6. INSULIN NOS [Concomitant]
     Active Substance: INSULIN NOS
     Indication: Type 2 diabetes mellitus
  7. DOCETAXEL [Suspect]
     Active Substance: DOCETAXEL\DOCETAXEL ANHYDROUS
     Indication: HER2 positive breast cancer
     Dosage: UNK

REACTIONS (8)
  - Breast cancer [Unknown]
  - Cardiac ventricular thrombosis [Recovered/Resolved]
  - Lower respiratory tract infection [Unknown]
  - Left ventricular dysfunction [Recovered/Resolved]
  - Disease progression [Unknown]
  - Type 2 diabetes mellitus [Recovered/Resolved]
  - Off label use [Unknown]
  - Cardiac failure congestive [Recovered/Resolved]
